FAERS Safety Report 11454198 (Version 1)
Quarter: 2015Q3

REPORT INFORMATION
  Report Type: Spontaneous
  Country: US (occurrence: US)
  Receive Date: 20150831
  Receipt Date: 20150831
  Transmission Date: 20151125
  Serious: Yes (Other)
  Sender: FDA-Public Use
  Company Number: US-ELI_LILLY_AND_COMPANY-US201001003596

PATIENT
  Age: 51 Year
  Sex: Female
  Weight: 87.08 kg

DRUGS (1)
  1. CYMBALTA [Suspect]
     Active Substance: DULOXETINE HYDROCHLORIDE
     Indication: FIBROMYALGIA
     Dosage: 30 MG, DAILY (1/D)
     Dates: start: 20090613

REACTIONS (3)
  - Weight increased [Not Recovered/Not Resolved]
  - Decreased activity [Unknown]
  - Increased appetite [Unknown]

NARRATIVE: CASE EVENT DATE: 2009
